FAERS Safety Report 14113803 (Version 5)
Quarter: 2018Q4

REPORT INFORMATION
  Report Type: Report from Study
  Country: BR (occurrence: BR)
  Receive Date: 20171023
  Receipt Date: 20181205
  Transmission Date: 20190204
  Serious: Yes (Other)
  Sender: FDA-Public Use
  Company Number: BR-ROCHE-2009876

PATIENT
  Sex: Male
  Weight: 63 kg

DRUGS (15)
  1. XOLAIR [Suspect]
     Active Substance: OMALIZUMAB
     Indication: ASTHMA
     Route: 058
     Dates: start: 2015
  2. TEGRETOL [Suspect]
     Active Substance: CARBAMAZEPINE
     Indication: MENTAL DISORDER
     Route: 048
  3. TIOTROPIO [Concomitant]
     Active Substance: TIOTROPIUM BROMIDE
     Indication: ASTHMA
     Route: 065
  4. CLONAZEPAM. [Concomitant]
     Active Substance: CLONAZEPAM
     Indication: PRODUCT USED FOR UNKNOWN INDICATION
     Route: 065
  5. ALENIA (BRAZIL) [Concomitant]
     Active Substance: BUDESONIDE\FORMOTEROL FUMARATE
     Indication: LUNG DISORDER
     Dosage: (12/400 UG)
     Route: 055
  6. TIOTROPIUM [Concomitant]
     Active Substance: TIOTROPIUM
     Indication: ASTHMA
     Dosage: 2 DF (2 PUFFERS), QD
     Route: 055
  7. CARBAMAZEPINE. [Concomitant]
     Active Substance: CARBAMAZEPINE
     Indication: SCHIZOPHRENIA
     Dosage: 3 DF, QD
     Route: 048
  8. XOLAIR [Suspect]
     Active Substance: OMALIZUMAB
     Route: 058
     Dates: start: 20180502
  9. TIOTROPIO [Concomitant]
     Active Substance: TIOTROPIUM BROMIDE
     Indication: LUNG DISORDER
     Dosage: 1 DF, QD
     Route: 055
  10. METICORTEN [Concomitant]
     Active Substance: PREDNISONE
     Indication: ASTHMA
     Route: 048
  11. ALENIA (BRAZIL) [Concomitant]
     Active Substance: BUDESONIDE\FORMOTEROL FUMARATE
     Indication: ASTHMA
     Route: 065
  12. XOLAIR [Suspect]
     Active Substance: OMALIZUMAB
     Indication: LUNG DISORDER
     Route: 058
     Dates: start: 2015
  13. OLANZAPINE. [Concomitant]
     Active Substance: OLANZAPINE
     Indication: SCHIZOPHRENIA
     Dosage: 2 DF, QD (1 OF 5 MG AND ANOTHER OF 10 MG)
     Route: 048
  14. XOLAIR [Suspect]
     Active Substance: OMALIZUMAB
     Route: 058
     Dates: start: 20180926
  15. AMPLICTIL [Concomitant]
     Active Substance: CHLORPROMAZINE HYDROCHLORIDE
     Indication: SCHIZOPHRENIA
     Dosage: 04 TABLETS IN MORNING, 03 AT LUNCH AND 04 AT NIGHT, USING SINCE 4 YEARS OLD
     Route: 048

REACTIONS (11)
  - Asthma [Recovered/Resolved]
  - Product use in unapproved indication [Unknown]
  - Drug dependence [Unknown]
  - Malaise [Recovering/Resolving]
  - Lung disorder [Unknown]
  - Dyspnoea [Recovering/Resolving]
  - Asthmatic crisis [Unknown]
  - Weight increased [Unknown]
  - Speech disorder [Recovering/Resolving]
  - Platelet count decreased [Unknown]
  - Fatigue [Unknown]
